FAERS Safety Report 12844532 (Version 1)
Quarter: 2016Q4

REPORT INFORMATION
  Report Type: Spontaneous
  Country: US (occurrence: US)
  Receive Date: 20161013
  Receipt Date: 20161013
  Transmission Date: 20170207
  Serious: No
  Sender: FDA-Public Use
  Company Number: US-ROCHE-1731170

PATIENT
  Sex: Male

DRUGS (6)
  1. OMEPRAZOLE. [Concomitant]
     Active Substance: OMEPRAZOLE
  2. ESBRIET [Suspect]
     Active Substance: PIRFENIDONE
     Indication: IDIOPATHIC PULMONARY FIBROSIS
     Route: 048
     Dates: start: 20151223
  3. OXYBUTYNIN [Concomitant]
     Active Substance: OXYBUTYNIN
  4. FINASTERIDE. [Concomitant]
     Active Substance: FINASTERIDE
  5. LORATADINE. [Concomitant]
     Active Substance: LORATADINE
  6. GLIPIZIDE. [Concomitant]
     Active Substance: GLIPIZIDE

REACTIONS (4)
  - Decreased appetite [Unknown]
  - Insomnia [Unknown]
  - Headache [Unknown]
  - Fatigue [Unknown]
